FAERS Safety Report 24306077 (Version 1)
Quarter: 2024Q3

REPORT INFORMATION
  Report Type: Spontaneous
  Country: FR (occurrence: FR)
  Receive Date: 20240911
  Receipt Date: 20240911
  Transmission Date: 20241016
  Serious: Yes (Death)
  Sender: CHEPLAPHARM
  Company Number: FR-BAYER-2015-454764

PATIENT
  Age: 71 Year
  Sex: Male

DRUGS (38)
  1. CLONAZEPAM [Suspect]
     Active Substance: CLONAZEPAM
     Route: 048
  2. CLONAZEPAM [Suspect]
     Active Substance: CLONAZEPAM
     Route: 048
  3. OMEPRAZOLE [Suspect]
     Active Substance: OMEPRAZOLE
     Route: 048
  4. ESOMEPRAZOLE [Suspect]
     Active Substance: ESOMEPRAZOLE
     Dosage: PROLONGED RELEASE CAPSULE
     Route: 048
  5. PROPRANOLOL [Suspect]
     Active Substance: PROPRANOLOL HYDROCHLORIDE
     Route: 048
  6. PROPRANOLOL [Suspect]
     Active Substance: PROPRANOLOL HYDROCHLORIDE
     Route: 048
  7. ALTACE [Suspect]
     Active Substance: RAMIPRIL
     Route: 048
  8. ASPIRIN DL-LYSINE [Suspect]
     Active Substance: ASPIRIN DL-LYSINE
     Route: 048
  9. ASPIRIN DL-LYSINE [Suspect]
     Active Substance: ASPIRIN DL-LYSINE
     Route: 048
  10. CELEBREX [Suspect]
     Active Substance: CELECOXIB
  11. CLOBAZAM [Suspect]
     Active Substance: CLOBAZAM
     Route: 048
  12. CLOBAZAM [Suspect]
     Active Substance: CLOBAZAM
     Route: 048
  13. CLOBAZAM [Suspect]
     Active Substance: CLOBAZAM
     Route: 048
  14. DIACEREIN [Suspect]
     Active Substance: DIACEREIN
     Route: 048
  15. DIACEREIN [Suspect]
     Active Substance: DIACEREIN
     Route: 048
  16. LASIX [Suspect]
     Active Substance: FUROSEMIDE
     Route: 048
  17. NITROGLYCERIN [Suspect]
     Active Substance: NITROGLYCERIN
     Route: 048
  18. NITROGLYCERIN [Suspect]
     Active Substance: NITROGLYCERIN
     Route: 062
  19. NITROGLYCERIN [Suspect]
     Active Substance: NITROGLYCERIN
     Route: 048
  20. POLYETHYLENE GLYCOL 3350 [Suspect]
     Active Substance: POLYETHYLENE GLYCOL 3350
     Route: 048
  21. MIANSERIN HYDROCHLORIDE [Suspect]
     Active Substance: MIANSERIN HYDROCHLORIDE
     Route: 048
  22. ACETAMINOPHEN [Suspect]
     Active Substance: ACETAMINOPHEN
     Dosage: 100 MG, 2X/DAY
     Route: 048
  23. ACETAMINOPHEN [Suspect]
     Active Substance: ACETAMINOPHEN
     Route: 048
  24. ACETAMINOPHEN [Suspect]
     Active Substance: ACETAMINOPHEN
     Dosage: 1000 MG, 2X/DAY
     Route: 048
  25. ACETAMINOPHEN [Suspect]
     Active Substance: ACETAMINOPHEN
     Route: 048
  26. PIPAMPERONE [Suspect]
     Active Substance: PIPAMPERONE
     Route: 048
  27. PREDNAZOLINE [Suspect]
     Active Substance: PREDNAZOLINE
     Route: 045
  28. ALBUTEROL [Suspect]
     Active Substance: ALBUTEROL
     Dosage: UNK
     Route: 045
  29. ALBUTEROL [Suspect]
     Active Substance: ALBUTEROL
  30. SEREVENT DISKUS [Suspect]
     Active Substance: SALMETEROL XINAFOATE
     Dosage: 1 PUFF, TWICE A DAY
     Route: 045
  31. SEREVENT DISKUS [Suspect]
     Active Substance: SALMETEROL XINAFOATE
     Route: 045
  32. ZOCOR [Suspect]
     Active Substance: SIMVASTATIN
     Route: 048
  33. TRIHEXYPHENIDYL [Suspect]
     Active Substance: TRIHEXYPHENIDYL
     Route: 048
  34. ISOPTIN [Suspect]
     Active Substance: VERAPAMIL HYDROCHLORIDE
     Route: 048
  35. ZOPICLONE [Suspect]
     Active Substance: ZOPICLONE
     Route: 048
  36. OMEPRAZOLE [Suspect]
     Active Substance: OMEPRAZOLE
     Route: 048
  37. OXYGEN [Concomitant]
     Active Substance: OXYGEN
  38. DETURGYLONE [Concomitant]
     Route: 045

REACTIONS (11)
  - Cerebral artery thrombosis [Fatal]
  - Ischaemic stroke [Fatal]
  - Nausea [Fatal]
  - Respiratory distress [Fatal]
  - Respiratory failure [Fatal]
  - Areflexia [Fatal]
  - Brain scan abnormal [Fatal]
  - Hemiplegia [Fatal]
  - Cerebrovascular accident [Fatal]
  - Disease recurrence [Fatal]
  - Facial paralysis [Fatal]
